FAERS Safety Report 20554637 (Version 1)
Quarter: 2022Q1

REPORT INFORMATION
  Report Type: Spontaneous
  Country: FR (occurrence: FR)
  Receive Date: 20220304
  Receipt Date: 20220304
  Transmission Date: 20220424
  Serious: Yes (Other)
  Sender: FDA-Public Use
  Company Number: None

PATIENT
  Age: 20 Year
  Sex: Male

DRUGS (4)
  1. PREGABALIN [Suspect]
     Active Substance: PREGABALIN
     Dosage: 1200 MG, DAILY
     Route: 048
     Dates: start: 2016
  2. RIVOTRIL [Suspect]
     Active Substance: CLONAZEPAM
     Dosage: SEVERAL TIMES/WEEK WITHOUT QUANTITY REPORTED
     Route: 048
  3. CANNABIS SATIVA SUBSP. INDICA TOP [Suspect]
     Active Substance: CANNABIS SATIVA SUBSP. INDICA TOP
     Dosage: UNK, DAILY, WITHOUT QUANTITY REPORTED
     Route: 055
  4. ALCOHOL [Concomitant]
     Active Substance: ALCOHOL
     Dosage: AT LEAST ONCE A WEEK WITHOUT QUANTITY REPORTED
     Route: 048

REACTIONS (1)
  - Drug abuse [Unknown]
